FAERS Safety Report 11638433 (Version 2)
Quarter: 2015Q4

REPORT INFORMATION
  Report Type: Spontaneous
  Country: TR (occurrence: TR)
  Receive Date: 20151016
  Receipt Date: 20151106
  Transmission Date: 20160304
  Serious: Yes (Other)
  Sender: FDA-Public Use
  Company Number: TR-TEVA-601599ISR

PATIENT
  Age: 3 Year
  Sex: Male

DRUGS (3)
  1. CARBOPLATIN. [Suspect]
     Active Substance: CARBOPLATIN
     Indication: NEUROBLASTOMA
  2. MELPHALAN [Suspect]
     Active Substance: MELPHALAN
     Indication: NEUROBLASTOMA
  3. ETOPOSIDE. [Suspect]
     Active Substance: ETOPOSIDE
     Indication: NEUROBLASTOMA

REACTIONS (1)
  - Inflammatory pseudotumour [Recovered/Resolved]
